FAERS Safety Report 19814352 (Version 1)
Quarter: 2021Q3

REPORT INFORMATION
  Report Type: Spontaneous
  Country: US (occurrence: US)
  Receive Date: 20210910
  Receipt Date: 20210910
  Transmission Date: 20211014
  Serious: No
  Sender: FDA-Public Use
  Company Number: None

PATIENT
  Sex: Female
  Weight: 81.45 kg

DRUGS (16)
  1. ASPIRIN. [Concomitant]
     Active Substance: ASPIRIN
  2. MONTELUKAST [Concomitant]
     Active Substance: MONTELUKAST SODIUM
  3. CETIRIZINE [Concomitant]
     Active Substance: CETIRIZINE HYDROCHLORIDE
  4. DIAZEPAM. [Concomitant]
     Active Substance: DIAZEPAM
  5. ATORVASTATIN [Concomitant]
     Active Substance: ATORVASTATIN
  6. METFORMIN [Concomitant]
     Active Substance: METFORMIN HYDROCHLORIDE
  7. IMATINIB. [Suspect]
     Active Substance: IMATINIB MESYLATE
     Indication: CHRONIC MYELOID LEUKAEMIA
     Route: 048
     Dates: start: 20210621
  8. LOSARTAN. [Concomitant]
     Active Substance: LOSARTAN
  9. SERTRALINE [Concomitant]
     Active Substance: SERTRALINE HYDROCHLORIDE
  10. BACLOFEN. [Concomitant]
     Active Substance: BACLOFEN
  11. GLIPIZIDE. [Concomitant]
     Active Substance: GLIPIZIDE
  12. HYDROXYZINE [Concomitant]
     Active Substance: HYDROXYZINE HYDROCHLORIDE
  13. ONDANSETRON [Concomitant]
     Active Substance: ONDANSETRON
  14. ALBUTEROL HFA [Concomitant]
     Active Substance: ALBUTEROL SULFATE
  15. MUCINEX [Concomitant]
     Active Substance: GUAIFENESIN
  16. NITROGLYCERIN. [Concomitant]
     Active Substance: NITROGLYCERIN

REACTIONS (2)
  - Nausea [None]
  - Vomiting [None]
